FAERS Safety Report 12939043 (Version 1)
Quarter: 2016Q4

REPORT INFORMATION
  Report Type: Spontaneous
  Country: US (occurrence: US)
  Receive Date: 20161114
  Receipt Date: 20161114
  Transmission Date: 20170207
  Serious: Yes (Hospitalization)
  Sender: FDA-Public Use
  Company Number: None

PATIENT
  Age: 59 Year
  Sex: Male
  Weight: 71.9 kg

DRUGS (1)
  1. XARELTO [Suspect]
     Active Substance: RIVAROXABAN
     Route: 048

REACTIONS (5)
  - Shock haemorrhagic [None]
  - Unresponsive to stimuli [None]
  - Haematochezia [None]
  - Lethargy [None]
  - International normalised ratio increased [None]

NARRATIVE: CASE EVENT DATE: 20161112
